FAERS Safety Report 16661480 (Version 5)
Quarter: 2019Q3

REPORT INFORMATION
  Report Type: Report from Study
  Country: IN (occurrence: IN)
  Receive Date: 20190802
  Receipt Date: 20190926
  Transmission Date: 20191004
  Serious: Yes (Death)
  Sender: FDA-Public Use
  Company Number: IN-PFIZER INC-2019329829

PATIENT
  Age: 59 Year
  Sex: Male
  Weight: 81 kg

DRUGS (11)
  1. METHYLCOBALAMIN. [Concomitant]
     Active Substance: METHYLCOBALAMIN
     Indication: VITAMIN SUPPLEMENTATION
     Dosage: 1 DF, UNK
     Dates: start: 20190308, end: 20190726
  2. DOLO 4 [Concomitant]
     Indication: PAIN
     Dosage: 650 MG, UNK
     Dates: start: 20190216
  3. GEMCAL D3 [Concomitant]
     Indication: MINERAL SUPPLEMENTATION
     Dosage: 500 MG, UNK
     Dates: start: 20190726
  4. AB PHYLLINE [Concomitant]
     Indication: DYSPNOEA
     Dosage: 1 DF, UNK
     Dates: start: 20190405
  5. DYTOR [Concomitant]
     Active Substance: TORSEMIDE
     Indication: OEDEMA PERIPHERAL
     Dosage: 10 MG, UNK
     Dates: start: 20190726
  6. CIPLOX [CIPROFLOXACIN HYDROCHLORIDE] [Concomitant]
     Indication: LACRIMATION INCREASED
     Dosage: 3 DROPS TO 9 DROPS
     Route: 047
     Dates: start: 20190626
  7. ULTRACET [Concomitant]
     Active Substance: ACETAMINOPHEN\TRAMADOL HYDROCHLORIDE
     Indication: PAIN
     Dosage: 365.5 MG, UNK
     Dates: start: 20190726
  8. LORLATINIB [Suspect]
     Active Substance: LORLATINIB
     Indication: NON-SMALL CELL LUNG CANCER METASTATIC
     Dosage: 100 MG, (25X4= 100MG) 1X/DAY, 6 CYCLES
     Route: 048
     Dates: start: 20190208
  9. RANTAC [Concomitant]
     Active Substance: RANITIDINE HYDROCHLORIDE
     Indication: PROPHYLAXIS
     Dosage: 150 MG, UNK
     Dates: start: 20190405, end: 20190726
  10. PAN D [DOMPERIDONE;PANTOPRAZOLE SODIUM SESQUIHYDRATE] [Concomitant]
     Indication: PROPHYLAXIS
     Dosage: 40 MG, UNK
     Dates: start: 20190726
  11. ROSUVAS [Concomitant]
     Indication: DYSLIPIDAEMIA
     Dosage: 10 MG, UNK
     Dates: start: 20190726

REACTIONS (1)
  - Pulmonary embolism [Fatal]

NARRATIVE: CASE EVENT DATE: 20190729
